FAERS Safety Report 7257702 (Version 2)
Quarter: 2020Q3

REPORT INFORMATION
  Report Type: Report from Study
  Country: PL (occurrence: PL)
  Receive Date: 20100127
  Receipt Date: 20100129
  Transmission Date: 20201104
  Serious: Yes (Hospitalization)
  Sender: FDA-Public Use
  Company Number: PL-WYE-H10286009

PATIENT
  Age: 56 Year
  Sex: Female
  Weight: 50 kg

DRUGS (8)
  1. VITAMIN B6 [Concomitant]
     Active Substance: PYRIDOXINE HYDROCHLORIDE
     Indication: ANAEMIA
     Dosage: NOT PROVIDED
     Dates: start: 20090619
  2. ELECTROLYTE SOLUTIONS [Concomitant]
     Indication: PROPHYLAXIS
     Dosage: NOT PROVIDED
     Dates: start: 20090716, end: 20090717
  3. OMEPRAZOLE. [Concomitant]
     Active Substance: OMEPRAZOLE
     Indication: GASTRITIS PROPHYLAXIS
     Dosage: NOT PROVIDED
     Dates: start: 20090716, end: 20090717
  4. INTERFERON ALFA NOS [Suspect]
     Active Substance: INTERFERON ALFA-2A OR INTERFERON ALFA-2B
     Indication: RENAL CELL CARCINOMA
     Dosage: ^3^ 3 TIMES A WEEK
     Route: 058
     Dates: start: 20090522
  5. FERROUS SULFATE\FOLIC ACID [Concomitant]
     Active Substance: FERROUS SULFATE\FOLIC ACID
     Indication: ANAEMIA
     Dosage: NOT PROVIDED
     Dates: start: 20090619
  6. BEVACIZUMAB. [Suspect]
     Active Substance: BEVACIZUMAB
     Indication: RENAL CELL CARCINOMA
     Dosage: ^520^ TWICE A MONTH
     Route: 042
     Dates: start: 20090522
  7. HYDROXYZINE [Concomitant]
     Active Substance: HYDROXYZINE HYDROCHLORIDE
     Indication: ANXIETY
     Dosage: NOT PROVIDED
     Dates: start: 20090716, end: 20090717
  8. FOLIC ACID. [Concomitant]
     Active Substance: FOLIC ACID
     Indication: ANAEMIA
     Dosage: NOT PROVIDED
     Dates: start: 20090619

REACTIONS (1)
  - Fatigue [Recovered/Resolved]

NARRATIVE: CASE EVENT DATE: 20090716
